FAERS Safety Report 20928925 (Version 1)
Quarter: 2022Q2

REPORT INFORMATION
  Report Type: Other
  Country: US (occurrence: US)
  Receive Date: 20220608
  Receipt Date: 20220608
  Transmission Date: 20220721
  Serious: No
  Sender: FDA-Public Use
  Company Number: US-DECIPHERA PHARMACEUTICALS LLC-2022US000447

PATIENT
  Sex: Male

DRUGS (1)
  1. QINLOCK [Suspect]
     Active Substance: RIPRETINIB
     Indication: Gastrointestinal stromal tumour
     Dosage: 150 MILLIGRAM, QD
     Route: 048
     Dates: start: 20210112

REACTIONS (5)
  - Red blood cell count decreased [Not Recovered/Not Resolved]
  - Tinnitus [Unknown]
  - Temperature intolerance [Unknown]
  - Blood bilirubin increased [Not Recovered/Not Resolved]
  - Headache [Unknown]
